FAERS Safety Report 23606566 (Version 1)
Quarter: 2024Q1

REPORT INFORMATION
  Report Type: Spontaneous
  Country: US (occurrence: US)
  Receive Date: 20240307
  Receipt Date: 20240307
  Transmission Date: 20240410
  Serious: Yes (Life-Threatening, Hospitalization)
  Sender: FDA-Public Use
  Company Number: US-MYLANLABS-2024M1021252

PATIENT
  Age: 79 Year
  Sex: Female

DRUGS (1)
  1. HEPARIN [Suspect]
     Active Substance: HEPARIN SODIUM
     Indication: Anticoagulant therapy
     Dosage: DRIP
     Route: 065

REACTIONS (3)
  - Respiratory failure [Recovering/Resolving]
  - Anaemia [Recovering/Resolving]
  - Pulmonary alveolar haemorrhage [Recovering/Resolving]
